FAERS Safety Report 6150785-1 (Version None)
Quarter: 2009Q2

REPORT INFORMATION
  Report Type: 
  Country: None (occurrence: None)
  Receive Date: 20090408
  Receipt Date: 20090330
  Transmission Date: 20091009
  Serious: Yes (Hospitalization, Other)
  Sender: FDA-Public Use
  Company Number: 189606USA

PATIENT
  Sex: Male

DRUGS (1)
  1. CLARAVIS [Suspect]
     Indication: ACNE
     Dosage: ORAL
     Route: 048
     Dates: start: 20090228, end: 20090301

REACTIONS (5)
  - DEATH OF RELATIVE [None]
  - DEPRESSION [None]
  - EDUCATIONAL PROBLEM [None]
  - HYPERTHYROIDISM [None]
  - SUICIDAL IDEATION [None]
